FAERS Safety Report 8900327 (Version 5)
Quarter: 2013Q2

REPORT INFORMATION
  Report Type: Spontaneous
  Country: US (occurrence: US)
  Receive Date: 20121109
  Receipt Date: 20130610
  Transmission Date: 20140414
  Serious: Yes (Hospitalization, Disabling, Other)
  Sender: FDA-Public Use
  Company Number: US-009507513-1211USA004329

PATIENT
  Sex: Female
  Weight: 88.89 kg

DRUGS (3)
  1. FOSAMAX [Suspect]
     Indication: OSTEOPOROSIS
     Dosage: 70 MG, QW
     Route: 048
     Dates: start: 2000, end: 201002
  2. ALENDRONATE SODIUM [Suspect]
     Indication: OSTEOPOROSIS
     Dosage: 70 MG, QW
     Route: 048
  3. CALCIUM (UNSPECIFIED) (+) VITAMIN D (UNSPECIFIED) [Concomitant]
     Dosage: 1000 MG, QD
     Dates: start: 2000

REACTIONS (88)
  - Femur fracture [Not Recovered/Not Resolved]
  - Open reduction of fracture [Not Recovered/Not Resolved]
  - Humerus fracture [Not Recovered/Not Resolved]
  - Closed fracture manipulation [Unknown]
  - Spinal laminectomy [Unknown]
  - Arthrodesis [Unknown]
  - Internal fixation of spine [Unknown]
  - Low turnover osteopathy [Not Recovered/Not Resolved]
  - Pancreatitis [Unknown]
  - Tibia fracture [Unknown]
  - Spinal fusion surgery [Unknown]
  - Bacteraemia [Unknown]
  - Fall [Unknown]
  - Convulsion [Unknown]
  - Craniotomy [Unknown]
  - Sepsis [Unknown]
  - Lower gastrointestinal haemorrhage [Unknown]
  - Anaemia [Unknown]
  - Rectal haemorrhage [Unknown]
  - Anaemia [Unknown]
  - Knee arthroplasty [Unknown]
  - Catheterisation cardiac [Unknown]
  - Fall [Unknown]
  - Fall [Unknown]
  - Fibula fracture [Unknown]
  - Lower limb fracture [Unknown]
  - Renal failure acute [Unknown]
  - Dyspnoea [Unknown]
  - Hypoxia [Unknown]
  - Depression [Unknown]
  - Spinal fusion surgery [Unknown]
  - Spinal operation [Unknown]
  - Debridement [Unknown]
  - Osteomyelitis [Unknown]
  - Extradural abscess [Unknown]
  - Device failure [Unknown]
  - Knee arthroplasty [Unknown]
  - Knee arthroplasty [Unknown]
  - Road traffic accident [Unknown]
  - Back pain [Unknown]
  - Anxiety [Unknown]
  - Fracture [Unknown]
  - Gastric pH decreased [Unknown]
  - Sleep disorder [Unknown]
  - Insulin-requiring type 2 diabetes mellitus [Unknown]
  - Neuralgia [Unknown]
  - Chronic obstructive pulmonary disease [Unknown]
  - Pain [Unknown]
  - Hypertension [Unknown]
  - Renal impairment [Unknown]
  - Asthma [Unknown]
  - Infection [Unknown]
  - Fall [Unknown]
  - Osteoarthritis [Unknown]
  - Hiatus hernia [Unknown]
  - Intervertebral disc protrusion [Unknown]
  - Osteoarthritis [Unknown]
  - Hepatitis C [Recovered/Resolved]
  - Hiatus hernia [Unknown]
  - Scoliosis [Unknown]
  - Hepatitis B [Unknown]
  - Lumbar radiculopathy [Unknown]
  - Post laminectomy syndrome [Unknown]
  - Brain neoplasm benign [Unknown]
  - Rheumatoid arthritis [Unknown]
  - Renal failure acute [Unknown]
  - Foot fracture [Recovering/Resolving]
  - Foot deformity [Recovered/Resolved]
  - Osteopenia [Unknown]
  - Exostosis [Unknown]
  - Neuropathy peripheral [Unknown]
  - Coronary artery disease [Unknown]
  - Hepatic enzyme increased [Unknown]
  - Vitamin D decreased [Unknown]
  - Intervertebral disc degeneration [Unknown]
  - Osteomyelitis [Unknown]
  - Intervertebral discitis [Unknown]
  - Post laminectomy syndrome [Unknown]
  - Intervertebral disc degeneration [Unknown]
  - Spinal disorder [Unknown]
  - Spinal column stenosis [Unknown]
  - Exploratory operation [Unknown]
  - Medical device removal [Unknown]
  - Spinal fusion surgery [Unknown]
  - Gastrooesophageal reflux disease [Unknown]
  - Oedema peripheral [Not Recovered/Not Resolved]
  - Gastric ulcer [Unknown]
  - Diarrhoea [Unknown]
